FAERS Safety Report 5917843-5 (Version None)
Quarter: 2008Q4

REPORT INFORMATION
  Report Type: 
  Country: None (occurrence: None)
  Receive Date: 20081014
  Receipt Date: 20070206
  Transmission Date: 20090506
  Serious: No
  Sender: FDA-Public Use
  Company Number: DE-ASTRAZENECA-2008PK02239

PATIENT
  Age: 14 Year
  Sex: Female

DRUGS (2)
  1. SEROQUEL [Suspect]
     Indication: PSYCHOTIC DISORDER
     Route: 048
  2. SEROQUEL [Suspect]
     Route: 048
     Dates: start: 20060201

REACTIONS (1)
  - WHITE BLOOD CELL COUNT DECREASED [None]
